FAERS Safety Report 7456416-2 (Version None)
Quarter: 2011Q2

REPORT INFORMATION
  Report Type: 
  Country: None (occurrence: None)
  Receive Date: 20110503
  Receipt Date: 20110426
  Transmission Date: 20111010
  Serious: Yes (Other)
  Sender: FDA-Public Use
  Company Number: JP-CEPHALON-2011002152

PATIENT
  Sex: Male
  Weight: 77 kg

DRUGS (10)
  1. PITAVASTATIN CALCIUM [Concomitant]
  2. SULFAMETOXAZOL/TRIMETOPRIM [Concomitant]
     Dates: start: 20110127
  3. GRANISETRON HCL [Concomitant]
     Dates: start: 20110119
  4. ENTECAVIR [Concomitant]
     Dates: start: 20110112
  5. FLUCONAZOLE [Concomitant]
     Dates: start: 20110127, end: 20110131
  6. ACICLOVIR [Concomitant]
     Dates: start: 20110216
  7. ITRACONAZOLE [Concomitant]
     Dates: start: 20110224
  8. RITUXIMAB [Concomitant]
     Dates: start: 20110117
  9. BENDAMUSTINE HCL [Suspect]
     Indication: MANTLE CELL LYMPHOMA
     Route: 042
     Dates: start: 20110119
  10. MICAFUNGIN SODIUM [Concomitant]
     Dates: start: 20110131, end: 20110223

REACTIONS (8)
  - DECREASED APPETITE [None]
  - LYMPHOCYTE COUNT DECREASED [None]
  - NEUTROPHIL COUNT DECREASED [None]
  - WHITE BLOOD CELL COUNT DECREASED [None]
  - BLOOD BETA-D-GLUCAN INCREASED [None]
  - C-REACTIVE PROTEIN INCREASED [None]
  - HYPOALBUMINAEMIA [None]
  - PLATELET COUNT DECREASED [None]
